FAERS Safety Report 8825163 (Version 2)
Quarter: 2012Q4

REPORT INFORMATION
  Report Type: 
  Country: US (occurrence: US)
  Receive Date: 20121004
  Receipt Date: 20121116
  Transmission Date: 20130627
  Serious: Yes (Death, Hospitalization)
  Sender: FDA-Public Use
  Company Number: US-GLAXOSMITHKLINE-A0989415A

PATIENT
  Age: 54 Year
  Sex: Female

DRUGS (1)
  1. FLOLAN [Suspect]
     Indication: PRODUCT USED FOR UNKNOWN INDICATION
     Dosage: 21.5NGKM Continuous
     Route: 042
     Dates: start: 20050614

REACTIONS (2)
  - Death [Fatal]
  - Palpitations [Not Recovered/Not Resolved]
